FAERS Safety Report 9336880 (Version 1)
Quarter: 2013Q2

REPORT INFORMATION
  Report Type: Spontaneous
  Country: JP (occurrence: JP)
  Receive Date: 20130607
  Receipt Date: 20130607
  Transmission Date: 20140414
  Serious: Yes (Other)
  Sender: FDA-Public Use
  Company Number: JP-PFIZER INC-2013171388

PATIENT
  Age: 70 Year
  Sex: Male

DRUGS (2)
  1. CELECOX [Suspect]
     Dosage: UNK
     Route: 048
  2. MUCOSTA [Concomitant]
     Dosage: UNK
     Route: 048

REACTIONS (2)
  - Electrocardiogram abnormal [Unknown]
  - Blood pressure decreased [Recovering/Resolving]
